FAERS Safety Report 19785384 (Version 9)
Quarter: 2022Q2

REPORT INFORMATION
  Report Type: Spontaneous
  Country: US (occurrence: US)
  Receive Date: 20210903
  Receipt Date: 20220414
  Transmission Date: 20220720
  Serious: Yes (Other)
  Sender: FDA-Public Use
  Company Number: US-PFIZER INC-2020226779

PATIENT
  Age: 86 Year
  Sex: Male

DRUGS (7)
  1. RETACRIT [Suspect]
     Active Substance: EPOETIN ALFA-EPBX
     Indication: Aplastic anaemia
     Dosage: X 4 SYRINGES OF 40 U EVERY 28 DAYS)
  2. RETACRIT [Suspect]
     Active Substance: EPOETIN ALFA-EPBX
     Indication: Myelodysplastic syndrome
     Dosage: RETACRIT 40,000 UNIT/ML INJECTION SOLUTION DAYS SUPPLY: 28
  3. RETACRIT [Suspect]
     Active Substance: EPOETIN ALFA-EPBX
     Indication: Refractory anaemia with an excess of blasts
     Dosage: UNK, WEEKLY (SIG: 1/1/2 MILLIMETER (60K) WEEKLY)
  4. RETACRIT [Suspect]
     Active Substance: EPOETIN ALFA-EPBX
     Dosage: 60,000 IU, WEEKLY (60,000 UNITS WEEKLY X 4 WEEKS REQUESTING 4 X 40,000 U AND 8 X 10,000 U)
  5. RETACRIT [Suspect]
     Active Substance: EPOETIN ALFA-EPBX
     Dosage: 60000 IU, WEEKLY (4 X 40,000 UNIT VIALS AND 8 X 10,000 UNIT VIALS)
     Dates: start: 20201124
  6. RETACRIT [Suspect]
     Active Substance: EPOETIN ALFA-EPBX
     Dosage: 60000 IU, WEEKLY (4 X 40,000 UNIT VIALS AND 8 X 10,000 UNIT VIALS)
     Dates: start: 20201222
  7. RETACRIT [Suspect]
     Active Substance: EPOETIN ALFA-EPBX
     Dosage: 40000 IU (40000 UN/ML VL 4X1ML)

REACTIONS (8)
  - Myelodysplastic syndrome [Unknown]
  - Anaemia [Unknown]
  - Off label use [Unknown]
  - Amnesia [Unknown]
  - Bone marrow disorder [Unknown]
  - Asthenia [Unknown]
  - Hypoacusis [Unknown]
  - Illness [Unknown]

NARRATIVE: CASE EVENT DATE: 20180101
